FAERS Safety Report 20104222 (Version 1)
Quarter: 2021Q4

REPORT INFORMATION
  Report Type: Spontaneous
  Country: US (occurrence: None)
  Receive Date: 20211123
  Receipt Date: 20211123
  Transmission Date: 20220303
  Serious: No
  Sender: FDA-Public Use
  Company Number: None

PATIENT
  Sex: Female

DRUGS (13)
  1. HUMIRA [Suspect]
     Active Substance: ADALIMUMAB
     Indication: Behcet^s syndrome
     Dosage: OTHER FREQUENCY : Q7FQ;?
     Route: 058
     Dates: start: 20210909
  2. BUT/APAP/CAF [Concomitant]
  3. COLCHICINE [Concomitant]
  4. DULOXETINE [Concomitant]
  5. EPINEPHRINE [Concomitant]
  6. MEMANTINE HCL [Concomitant]
  7. MORPHINE SUL [Concomitant]
  8. ONDANSETRON [Concomitant]
  9. ONDANSETRON ODT [Concomitant]
  10. PULMICORT [Concomitant]
  11. SEREVENT DIS [Concomitant]
  12. SUMATRIPTAN [Concomitant]
  13. TIZANIDINE [Concomitant]

REACTIONS (4)
  - Haemorrhage [None]
  - Blister [None]
  - Stress [None]
  - Product distribution issue [None]
